FAERS Safety Report 24115807 (Version 1)
Quarter: 2024Q3

REPORT INFORMATION
  Report Type: Spontaneous
  Country: US (occurrence: US)
  Receive Date: 20240721
  Receipt Date: 20240721
  Transmission Date: 20241017
  Serious: Yes (Other)
  Sender: ALIMERA
  Company Number: US-ALIMERA SCIENCES LIMITED-US-A16013-23-000765

PATIENT
  Age: 73 Year
  Sex: Female

DRUGS (1)
  1. ILUVIEN [Suspect]
     Active Substance: FLUOCINOLONE ACETONIDE
     Indication: Diabetic retinal oedema
     Dosage: 0.25 MICROGRAM, QD - RIGHT EYE
     Route: 031

REACTIONS (3)
  - Vitrectomy [Recovered/Resolved]
  - Medical device removal [Recovered/Resolved]
  - Intraocular pressure increased [Unknown]
